FAERS Safety Report 5989750-3 (Version None)
Quarter: 2008Q4

REPORT INFORMATION
  Report Type: 
  Country: None (occurrence: None)
  Receive Date: 20081209
  Receipt Date: 20081126
  Transmission Date: 20090506
  Serious: Yes (Other)
  Sender: FDA-Public Use
  Company Number: 2008EN000172

PATIENT
  Age: 71 Year
  Sex: Female

DRUGS (10)
  1. ABELCET [Suspect]
     Indication: EVIDENCE BASED TREATMENT
     Dosage: 350 MG; IV
     Route: 042
     Dates: start: 20081110, end: 20081110
  2. MEROPENEM [Concomitant]
  3. GENTAMICIN [Concomitant]
  4. ENOXAPARIN SODIUM [Concomitant]
  5. COMBIVENT [Concomitant]
  6. ACETAMINOPHEN [Concomitant]
  7. VANCOMYCIN [Concomitant]
  8. GLUTAMINE [Concomitant]
  9. MORPHINE [Concomitant]
  10. OMEPRAZOLE [Concomitant]

REACTIONS (5)
  - BLOOD PRESSURE INCREASED [None]
  - CONDITION AGGRAVATED [None]
  - HEART RATE INCREASED [None]
  - OXYGEN SATURATION DECREASED [None]
  - WHEEZING [None]
